FAERS Safety Report 18419907 (Version 5)
Quarter: 2020Q4

REPORT INFORMATION
  Report Type: Spontaneous
  Country: US (occurrence: US)
  Receive Date: 20201023
  Receipt Date: 20201112
  Transmission Date: 20210114
  Serious: Yes (Other)
  Sender: FDA-Public Use
  Company Number: US-PFIZER INC-2020409427

PATIENT
  Age: 93 Year
  Sex: Male
  Weight: 63.5 kg

DRUGS (2)
  1. VYNDAQEL [Suspect]
     Active Substance: TAFAMIDIS MEGLUMINE
     Indication: AMYLOIDOSIS SENILE
     Dosage: 80 MG, 1X/DAY (FOUR 20MG CAPSULES ONCE A DAY BY MOUTH)
     Route: 048
     Dates: start: 201910
  2. VYNDAQEL [Suspect]
     Active Substance: TAFAMIDIS MEGLUMINE
     Indication: CARDIAC AMYLOIDOSIS
     Dosage: 40 MG, 1X/DAY (INSTEAD OF 4 CAPSULES A DAY HE WAS TAKING 2)
     Route: 048

REACTIONS (7)
  - Asthenia [Not Recovered/Not Resolved]
  - Dyspnoea [Not Recovered/Not Resolved]
  - Cardiomyopathy [Not Recovered/Not Resolved]
  - Cardiovascular disorder [Unknown]
  - Hypoacusis [Unknown]
  - Cardiac hypertrophy [Not Recovered/Not Resolved]
  - Intentional product use issue [Unknown]

NARRATIVE: CASE EVENT DATE: 202010
